FAERS Safety Report 5190555-4 (Version None)
Quarter: 2006Q4

REPORT INFORMATION
  Report Type: 
  Country: None (occurrence: None)
  Receive Date: 20061222
  Receipt Date: 20060606
  Transmission Date: 20070319
  Serious: No
  Sender: FDA-Public Use
  Company Number: US-BRISTOL-MYERS SQUIBB COMPANY-13402656

PATIENT
  Age: 80 Year
  Sex: Female

DRUGS (2)
  1. KENALOG [Suspect]
  2. FENTANYL TRANSDERMAL SYSTEM [Suspect]

REACTIONS (2)
  - ALOPECIA [None]
  - HYPERHIDROSIS [None]
